FAERS Safety Report 17472044 (Version 1)
Quarter: 2020Q1

REPORT INFORMATION
  Report Type: Spontaneous
  Country: CN (occurrence: CN)
  Receive Date: 20200228
  Receipt Date: 20200228
  Transmission Date: 20200409
  Serious: Yes (Death, Life-Threatening, Hospitalization, Other)
  Sender: FDA-Public Use
  Company Number: CN-ACCORD-173908

PATIENT
  Age: 40 Year
  Sex: Female

DRUGS (4)
  1. FOLINIC ACID [Concomitant]
     Active Substance: LEUCOVORIN
     Indication: SALVAGE THERAPY
  2. METHOTREXATE. [Suspect]
     Active Substance: METHOTREXATE
     Indication: ANGIOCENTRIC LYMPHOMA
     Dosage: ON DAY 1
     Route: 041
     Dates: start: 201501
  3. PEGASPARGASE [Suspect]
     Active Substance: PEGASPARGASE
     Indication: ANGIOCENTRIC LYMPHOMA
     Dosage: ON DAY 2
     Route: 030
     Dates: start: 201501
  4. DEXAMETHASONE. [Suspect]
     Active Substance: DEXAMETHASONE
     Indication: ANGIOCENTRIC LYMPHOMA
     Dosage: FROM DAY 1 TO 4
     Route: 041
     Dates: start: 201501

REACTIONS (6)
  - Multiple organ dysfunction syndrome [Fatal]
  - Blood fibrinogen decreased [Unknown]
  - Bone marrow failure [Unknown]
  - Pneumonia [Unknown]
  - Neutropenia [Unknown]
  - Gastrointestinal haemorrhage [Unknown]

NARRATIVE: CASE EVENT DATE: 2015
